FAERS Safety Report 4731574-9 (Version None)
Quarter: 2005Q3

REPORT INFORMATION
  Report Type: 
  Country: None (occurrence: None)
  Receive Date: 20050722
  Receipt Date: 20050429
  Transmission Date: 20060218
  Serious: Yes (Hospitalization, Other)
  Sender: FDA-Public Use
  Company Number: USA-2005-0019179

PATIENT
  Age: 37 Year
  Sex: Male
  Weight: 89.3 kg

DRUGS (4)
  1. PALLADONE [Suspect]
     Indication: PAIN
     Dosage: 64 MG, DAILY, ORAL
     Route: 048
     Dates: start: 20050228
  2. METHADONE (METHADONE) [Suspect]
     Dosage: 320 MG, DAILY, ORAL
     Route: 048
  3. KLONOPIN [Suspect]
     Dosage: 2 MG, BID, ORAL
     Route: 048
  4. SOMA [Suspect]
     Dosage: 350 MG, BID, ORAL
     Route: 048

REACTIONS (8)
  - COMA [None]
  - CONFUSIONAL STATE [None]
  - DRUG ABUSER [None]
  - HAEMATOCRIT DECREASED [None]
  - HAEMOGLOBIN DECREASED [None]
  - MULTIPLE DRUG OVERDOSE [None]
  - SEDATION [None]
  - WHITE BLOOD CELL COUNT INCREASED [None]
